FAERS Safety Report 7650093-3 (Version None)
Quarter: 2011Q3

REPORT INFORMATION
  Report Type: 
  Country: None (occurrence: None)
  Receive Date: 20110802
  Receipt Date: 20110729
  Transmission Date: 20111222
  Serious: Yes (Other)
  Sender: FDA-Public Use
  Company Number: US-SANOFI-AVENTIS-2011SA042807

PATIENT
  Age: 80 Year
  Sex: Female

DRUGS (12)
  1. ESOMEPRAZOLE MAGNESIUM [Concomitant]
     Dosage: TAKEN IN THE MORNING
  2. GLIPIZIDE [Concomitant]
     Dosage: TAKEN IN THE MORNING
  3. WARFARIN SODIUM [Concomitant]
  4. THYROID TAB [Concomitant]
     Dosage: TAKEN IN THE MORNING
  5. LASIX [Concomitant]
  6. GABAPENTIN [Concomitant]
  7. HYDROCHLOROTHIAZIDE [Concomitant]
  8. VITAMIN TAB [Concomitant]
  9. MULTAQ [Suspect]
     Indication: ATRIAL FIBRILLATION
     Route: 048
     Dates: start: 20110428
  10. POTASSIUM [Concomitant]
  11. ULTRACET [Concomitant]
  12. TRAMADOL HCL [Concomitant]

REACTIONS (6)
  - ATRIAL FIBRILLATION [None]
  - FEELING ABNORMAL [None]
  - CONDITION AGGRAVATED [None]
  - HEART RATE IRREGULAR [None]
  - DYSPNOEA [None]
  - SLEEP DISORDER [None]
